FAERS Safety Report 13356595 (Version 1)
Quarter: 2017Q1

REPORT INFORMATION
  Report Type: Spontaneous
  Country: AR (occurrence: AR)
  Receive Date: 20170321
  Receipt Date: 20170321
  Transmission Date: 20170429
  Serious: Yes (Other)
  Sender: FDA-Public Use
  Company Number: AR-PFIZER INC-2017117848

PATIENT
  Age: 80 Year
  Sex: Male

DRUGS (2)
  1. APATRIX [Suspect]
     Active Substance: DEXLANSOPRAZOLE
     Dosage: 120 MG, UNK
     Route: 065
  2. PANTOP [Suspect]
     Active Substance: PANTOPRAZOLE SODIUM
     Dosage: 80 MG, UNK
     Route: 048
     Dates: start: 2002, end: 2017

REACTIONS (1)
  - Chronic kidney disease [Not Recovered/Not Resolved]
